FAERS Safety Report 8764849 (Version 1)
Quarter: 2012Q4

REPORT INFORMATION
  Report Type: 
  Country: US (occurrence: US)
  Receive Date: 20120901
  Receipt Date: 20120901
  Transmission Date: 20130627
  Serious: No
  Sender: FDA-Public Use
  Company Number: US-009507513-1208USA003634

PATIENT

DRUGS (1)
  1. IMPLANON [Suspect]
     Indication: UTERINE CANCER
     Dosage: 1 DF, UNK
     Route: 059
     Dates: start: 201104

REACTIONS (4)
  - Device dislocation [Unknown]
  - Medical device complication [Unknown]
  - Off label use [Unknown]
  - No adverse event [Unknown]
